FAERS Safety Report 10563320 (Version 1)
Quarter: 2014Q4

REPORT INFORMATION
  Report Type: Spontaneous
  Country: FR (occurrence: FR)
  Receive Date: 20141104
  Receipt Date: 20141104
  Transmission Date: 20150529
  Serious: Yes (Hospitalization)
  Sender: FDA-Public Use
  Company Number: FR-SA-2014SA141346

PATIENT
  Age: 83 Year
  Sex: Female
  Weight: 47 kg

DRUGS (5)
  1. LEUCOVORIN [Concomitant]
     Active Substance: LEUCOVORIN
     Indication: PROPHYLAXIS
  2. PRIMPERAN [Suspect]
     Active Substance: METOCLOPRAMIDE HYDROCHLORIDE
     Indication: PROPHYLAXIS
     Dosage: FORM: VIAL
     Route: 042
     Dates: start: 20140923, end: 20141014
  3. ZOPHREN [Concomitant]
     Active Substance: ONDANSETRON
     Route: 042
  4. ELOXATIN [Suspect]
     Active Substance: OXALIPLATIN
     Indication: PROPHYLAXIS
     Route: 042
     Dates: start: 20140924, end: 20141007
  5. 5 FU [Suspect]
     Active Substance: FLUOROURACIL
     Indication: PROPHYLAXIS
     Route: 065

REACTIONS (6)
  - Pain [Recovered/Resolved]
  - Chills [Recovered/Resolved]
  - Hypotonia [Recovered/Resolved]
  - Body temperature decreased [Recovered/Resolved]
  - Tremor [Recovered/Resolved]
  - Blood pressure decreased [Recovered/Resolved]

NARRATIVE: CASE EVENT DATE: 20141007
